FAERS Safety Report 23848728 (Version 2)
Quarter: 2024Q2

REPORT INFORMATION
  Report Type: Spontaneous
  Country: US (occurrence: US)
  Receive Date: 20240513
  Receipt Date: 20240607
  Transmission Date: 20240715
  Serious: No
  Sender: FDA-Public Use
  Company Number: US-PFIZER INC-PV202400032379

PATIENT
  Age: 83 Year
  Sex: Male

DRUGS (1)
  1. INLYTA [Suspect]
     Active Substance: AXITINIB
     Dosage: 5 MG EVERY 12 HOURS X 14 DAYS

REACTIONS (4)
  - Asthenia [Unknown]
  - Gout [Unknown]
  - Fatigue [Unknown]
  - Product prescribing error [Unknown]
